FAERS Safety Report 15953564 (Version 1)
Quarter: 2019Q1

REPORT INFORMATION
  Report Type: Spontaneous
  Country: JP (occurrence: JP)
  Receive Date: 20190212
  Receipt Date: 20190212
  Transmission Date: 20190417
  Serious: Yes (Other)
  Sender: FDA-Public Use
  Company Number: JP-ASTRAZENECA-2019SE05701

PATIENT
  Age: 73 Year
  Sex: Female
  Weight: 57 kg

DRUGS (1)
  1. IMFINZI [Suspect]
     Active Substance: DURVALUMAB
     Indication: NON-SMALL CELL LUNG CANCER
     Route: 041
     Dates: start: 20181031, end: 20181212

REACTIONS (1)
  - Radiation pneumonitis [Recovering/Resolving]

NARRATIVE: CASE EVENT DATE: 20181128
